FAERS Safety Report 9882242 (Version 1)
Quarter: 2014Q1

REPORT INFORMATION
  Report Type: Spontaneous
  Country: US (occurrence: US)
  Receive Date: 20140207
  Receipt Date: 20140207
  Transmission Date: 20141002
  Serious: Yes (Other)
  Sender: FDA-Public Use
  Company Number: US-BAYER-2014-017619

PATIENT
  Age: 44 Year
  Sex: Female

DRUGS (2)
  1. MIRENA [Suspect]
     Indication: CONTRACEPTION
     Dosage: UNK
     Route: 015
     Dates: start: 20081223
  2. MIRENA [Suspect]
     Indication: CONTRACEPTION
     Dosage: UNK
     Route: 015
     Dates: start: 20131223

REACTIONS (6)
  - Device dislocation [Not Recovered/Not Resolved]
  - Device difficult to use [Not Recovered/Not Resolved]
  - Device misuse [Not Recovered/Not Resolved]
  - Haemorrhoidal haemorrhage [Not Recovered/Not Resolved]
  - Haemorrhoids [Not Recovered/Not Resolved]
  - Device misuse [None]
